FAERS Safety Report 4591855-9 (Version None)
Quarter: 2005Q1

REPORT INFORMATION
  Report Type: 
  Country: None (occurrence: None)
  Receive Date: 20050222
  Receipt Date: 20050209
  Transmission Date: 20050727
  Serious: Yes (Hospitalization)
  Sender: FDA-Public Use
  Company Number: HQWYE218710FEB05

PATIENT
  Sex: Female

DRUGS (7)
  1. RAPAMUNE [Suspect]
     Indication: PROPHYLAXIS AGAINST TRANSPLANT REJECTION
     Dosage: 12 MG, ORAL
     Route: 048
     Dates: start: 20030101
  2. CELLCEPT [Concomitant]
  3. BACTRIM [Concomitant]
  4. VALCYTE [Concomitant]
  5. PREDNISONE [Concomitant]
  6. VITAMIN E [Concomitant]
  7. NORVASC [Concomitant]

REACTIONS (1)
  - NEUROGENIC BLADDER [None]
